FAERS Safety Report 5483884-8 (Version None)
Quarter: 2007Q4

REPORT INFORMATION
  Report Type: 
  Country: None (occurrence: None)
  Receive Date: 20071009
  Receipt Date: 20070925
  Transmission Date: 20080405
  Serious: Yes (Death)
  Sender: FDA-Public Use
  Company Number: 17596

PATIENT
  Age: 54 Year
  Sex: Female
  Weight: 90 kg

DRUGS (4)
  1. PACLITAXEL [Suspect]
     Indication: BREAST CANCER METASTATIC
     Dosage: 80 MG/M2 WEEKLY;IV
     Route: 042
     Dates: start: 20060622, end: 20060629
  2. HERCEPTIN [Suspect]
     Indication: BREAST CANCER METASTATIC
     Dosage: 720 MG ONCE; IV
     Route: 042
     Dates: start: 20060622, end: 20060922
  3. EPIRUBICIN [Concomitant]
  4. RAMIPRIL [Concomitant]

REACTIONS (4)
  - LUNG CONSOLIDATION [None]
  - PNEUMOCYSTIS JIROVECI PNEUMONIA [None]
  - PNEUMONITIS [None]
  - SEPSIS [None]
